FAERS Safety Report 5664677-5 (Version None)
Quarter: 2008Q1

REPORT INFORMATION
  Report Type: 
  Country: None (occurrence: None)
  Receive Date: 20080314
  Receipt Date: 20080307
  Transmission Date: 20080703
  Serious: Yes (Hospitalization)
  Sender: FDA-Public Use
  Company Number: BR-ASTRAZENECA-2008UW04882

PATIENT
  Age: 69 Year
  Sex: Female
  Weight: 49 kg

DRUGS (5)
  1. ARIMIDEX [Suspect]
     Indication: BREAST CANCER FEMALE
     Route: 048
     Dates: start: 20040101
  2. OLCADIL [Concomitant]
     Indication: ANXIETY
     Route: 048
  3. ATACAND HCT [Concomitant]
     Route: 048
  4. SPLENDIL [Concomitant]
  5. SIMVASTATIN [Concomitant]
     Route: 048

REACTIONS (5)
  - CEREBRAL INFARCTION [None]
  - CONFUSIONAL STATE [None]
  - HYPERCHOLESTEROLAEMIA [None]
  - HYPERTENSION [None]
  - SYNCOPE [None]
